FAERS Safety Report 12811410 (Version 1)
Quarter: 2016Q4

REPORT INFORMATION
  Report Type: Spontaneous
  Country: US (occurrence: US)
  Receive Date: 20161005
  Receipt Date: 20161005
  Transmission Date: 20170207
  Serious: No
  Sender: FDA-Public Use
  Company Number: US-PFIZER INC-2016462529

PATIENT
  Sex: Male

DRUGS (5)
  1. ASPIRIN. [Suspect]
     Active Substance: ASPIRIN
     Dosage: UNK
  2. LIPITOR [Suspect]
     Active Substance: ATORVASTATIN CALCIUM
     Dosage: UNK
  3. PIOGLITAZONE. [Suspect]
     Active Substance: PIOGLITAZONE
     Dosage: UNK
  4. METFORMIN [Suspect]
     Active Substance: METFORMIN HYDROCHLORIDE
     Dosage: UNK
  5. VICTOZA [Suspect]
     Active Substance: LIRAGLUTIDE
     Dosage: UNK

REACTIONS (2)
  - Muscular weakness [Unknown]
  - Arthralgia [Unknown]
